FAERS Safety Report 7518248-6 (Version None)
Quarter: 2011Q2

REPORT INFORMATION
  Report Type: 
  Country: None (occurrence: None)
  Receive Date: 20110523
  Receipt Date: 20110511
  Transmission Date: 20111010
  Serious: Yes (Disabling)
  Sender: FDA-Public Use
  Company Number: GER/UKI/11/0018260

PATIENT
  Age: 63 Year
  Sex: Female
  Weight: 64 kg

DRUGS (4)
  1. MIRTAZAPINE [Concomitant]
  2. SIMVASTATIN [Concomitant]
  3. ESOMEPRAZOLE (ESOMEPRAZOLE) [Concomitant]
  4. FLUOXETINE [Suspect]
     Indication: DEPRESSION
     Dosage: 20 MG, 1 IN 1 D, ORAL
     Route: 048
     Dates: start: 20110222, end: 20110415

REACTIONS (9)
  - FATIGUE [None]
  - ALLERGY TO ANIMAL [None]
  - BACK PAIN [None]
  - NECK PAIN [None]
  - SKIN DISCOLOURATION [None]
  - PAIN [None]
  - PAIN IN EXTREMITY [None]
  - HEADACHE [None]
  - CONDITION AGGRAVATED [None]
